FAERS Safety Report 5140373-8 (Version None)
Quarter: 2006Q4

REPORT INFORMATION
  Report Type: 
  Country: None (occurrence: None)
  Receive Date: 20061024
  Receipt Date: 20061005
  Transmission Date: 20070319
  Serious: Yes (Disabling)
  Sender: FDA-Public Use
  Company Number: JP200610001469

PATIENT
  Age: 67 Year
  Sex: Female

DRUGS (4)
  1. EVISTA [Suspect]
     Indication: OSTEOPOROSIS
     Dosage: 60 MG, DAILY (1/D), ORAL
     Route: 048
  2. MOBIC [Concomitant]
  3. MUCOSTA (REBAMIPIDE) [Concomitant]
  4. VOLTAREN /SCH/ (DICLOFENAC POTASSIUM) TAPE [Concomitant]

REACTIONS (2)
  - HAEMORRHAGE [None]
  - RETINAL VEIN OCCLUSION [None]
